FAERS Safety Report 23627238 (Version 3)
Quarter: 2025Q3

REPORT INFORMATION
  Report Type: Report from Study
  Country: US (occurrence: US)
  Receive Date: 20240313
  Receipt Date: 20250811
  Transmission Date: 20251021
  Serious: No
  Sender: KYOWA
  Company Number: US-KYOWAKIRIN-2024KK004648

PATIENT

DRUGS (7)
  1. BUROSUMAB [Suspect]
     Active Substance: BUROSUMAB
     Indication: Product used for unknown indication
     Dosage: UNK, 1X/4 WEEKS
     Route: 065
  2. BUROSUMAB [Suspect]
     Active Substance: BUROSUMAB
     Indication: Hereditary hypophosphataemic rickets
     Dosage: 20 MG, 1X/4 WEEKS
     Route: 030
     Dates: start: 202310
  3. BUROSUMAB [Suspect]
     Active Substance: BUROSUMAB
     Indication: Bone disorder
     Dosage: 20 MG, 1X/4 WEEKS
     Route: 030
     Dates: start: 202310
  4. BUROSUMAB [Suspect]
     Active Substance: BUROSUMAB
     Dosage: 20 MG, 1X/4 WEEKS
     Route: 030
     Dates: start: 202311
  5. BUROSUMAB [Suspect]
     Active Substance: BUROSUMAB
     Indication: Hereditary hypophosphataemic rickets
     Dosage: 30 MG, 1X/4 WEEKS
     Route: 030
     Dates: start: 202310
  6. BUROSUMAB [Suspect]
     Active Substance: BUROSUMAB
     Indication: Bone disorder
     Dosage: 30 MG, 1X/4 WEEKS
     Route: 030
     Dates: start: 202310
  7. BUROSUMAB [Suspect]
     Active Substance: BUROSUMAB
     Dosage: 30 MG, 1X/4 WEEKS
     Route: 030
     Dates: start: 202310

REACTIONS (3)
  - Injection site pain [Unknown]
  - Maternal exposure during pregnancy [Unknown]
  - Incorrect route of product administration [Unknown]
